FAERS Safety Report 7911809-1 (Version None)
Quarter: 2011Q4

REPORT INFORMATION
  Report Type: 
  Country: None (occurrence: None)
  Receive Date: 20111114
  Receipt Date: 20110928
  Transmission Date: 20120403
  Serious: Yes (Hospitalization)
  Sender: FDA-Public Use
  Company Number: DE-ROCHE-717774

PATIENT
  Sex: Female
  Weight: 74 kg

DRUGS (5)
  1. DOCETAXEL [Suspect]
     Route: 042
  2. HERCEPTIN [Suspect]
     Indication: BREAST CANCER
     Dosage: FORM: VIAL, LAST DOSE PRIOR TO SAE:06 JULY 2010, LOADING DOSE, TOATL DOSE:600 MG
     Route: 042
     Dates: start: 20100706, end: 20100726
  3. AVASTIN [Suspect]
     Indication: BREAST CANCER
     Dosage: FORM: VIAL, PERMANENTLY DISCONTINUED,TOTAL DOSE:1100 MG, LAST DOSE PRIOR TO SAE:06  JUL 2010
     Route: 042
     Dates: start: 20100706, end: 20100729
  4. DOCETAXEL [Suspect]
     Indication: BREAST CANCER
     Dosage: FORM: VIAL, DOSE LEVEL:100MG/M2, TOTAL DOSE:190 MG,LAST DOSE PRIOR TO SAE:06 JULY 2010
     Route: 042
     Dates: start: 20100706, end: 20100726
  5. HERCEPTIN [Suspect]
     Dosage: MAINTAINENCE DOSE
     Route: 042

REACTIONS (1)
  - LARGE INTESTINAL ULCER [None]
